FAERS Safety Report 8165649-1 (Version None)
Quarter: 2012Q1

REPORT INFORMATION
  Report Type: 
  Country: None (occurrence: None)
  Receive Date: 20120223
  Receipt Date: 20120223
  Transmission Date: 20120608
  Serious: No
  Sender: FDA-Public Use
  Company Number: None

PATIENT
  Age: 83 Year
  Sex: Female
  Weight: 45.3597 kg

DRUGS (3)
  1. LEVOCETIRIZINE TAB 5MG [Suspect]
     Indication: MYCOTIC ALLERGY
     Dosage: 1 TABLET EVE EVERY DAY
     Dates: start: 20120105, end: 20120121
  2. LEVOCETIRIZINE TAB 5MG [Suspect]
     Indication: HOUSE DUST ALLERGY
     Dosage: 1 TABLET EVE EVERY DAY
     Dates: start: 20120105, end: 20120121
  3. LEVOCETIRIZINE TAB 5MG [Suspect]
     Indication: SEASONAL ALLERGY
     Dosage: 1 TABLET EVE EVERY DAY
     Dates: start: 20120105, end: 20120121

REACTIONS (9)
  - THINKING ABNORMAL [None]
  - POLYDIPSIA [None]
  - CHEILITIS [None]
  - DRY MOUTH [None]
  - DISORIENTATION [None]
  - SOMNOLENCE [None]
  - WEIGHT DECREASED [None]
  - MEMORY IMPAIRMENT [None]
  - WRONG DRUG ADMINISTERED [None]
